FAERS Safety Report 21043940 (Version 2)
Quarter: 2022Q3

REPORT INFORMATION
  Report Type: Spontaneous
  Country: US (occurrence: US)
  Receive Date: 20220705
  Receipt Date: 20220705
  Transmission Date: 20221027
  Serious: No
  Sender: FDA-Public Use
  Company Number: US-SAREPTA THERAPEUTICS INC.-SRP2022-002295

PATIENT
  Age: 22 Year
  Sex: Male

DRUGS (2)
  1. EXONDYS 51 [Suspect]
     Active Substance: ETEPLIRSEN
     Indication: Muscular dystrophy
     Dosage: 2300 MILLIGRAM WEEKLY
     Route: 042
     Dates: start: 20161128
  2. EXONDYS 51 [Suspect]
     Active Substance: ETEPLIRSEN
     Dosage: 2300 MILLIGRAM WEEKLY
     Route: 042
     Dates: start: 20220617

REACTIONS (2)
  - Product dose omission issue [Unknown]
  - No adverse event [Unknown]

NARRATIVE: CASE EVENT DATE: 20220601
